FAERS Safety Report 20849468 (Version 2)
Quarter: 2023Q1

REPORT INFORMATION
  Report Type: Other
  Country: CA (occurrence: CA)
  Receive Date: 20220519
  Receipt Date: 20230221
  Transmission Date: 20230418
  Serious: Yes (Death, Other)
  Sender: FDA-Public Use
  Company Number: CA-TOLMAR, INC.-22CA034115

PATIENT
  Sex: Male

DRUGS (4)
  1. ELIGARD [Suspect]
     Active Substance: LEUPROLIDE ACETATE
     Indication: Prostate cancer
     Dosage: 45 MILLIGRAM, Q 6 MONTH
     Route: 058
     Dates: start: 20211103
  2. ELIGARD [Suspect]
     Active Substance: LEUPROLIDE ACETATE
     Dosage: 45 MILLIGRAM, Q 6 MONTH
     Route: 058
     Dates: start: 20220419
  3. ELIGARD [Suspect]
     Active Substance: LEUPROLIDE ACETATE
     Dosage: 45 MILLIGRAM, Q 6 MONTH
     Route: 058
     Dates: start: 20220707
  4. UNSPECIFIED INGREDIENT [Suspect]
     Active Substance: UNSPECIFIED INGREDIENT
     Indication: Product used for unknown indication
     Dosage: UNK

REACTIONS (2)
  - Death [Fatal]
  - Haematochezia [Unknown]
